FAERS Safety Report 8945705 (Version 2)
Quarter: 2013Q2

REPORT INFORMATION
  Report Type: Spontaneous
  Country: US (occurrence: US)
  Receive Date: 20121205
  Receipt Date: 20130627
  Transmission Date: 20140414
  Serious: Yes (Other)
  Sender: FDA-Public Use
  Company Number: US-UCBSA-072454

PATIENT
  Age: 80 Year
  Sex: Male

DRUGS (2)
  1. ISOSORBIDE MONONITRATE [Suspect]
     Dosage: 30MG
  2. ISOSORBIDE MONONITRATE [Suspect]

REACTIONS (3)
  - Deafness [Unknown]
  - Tinnitus [Unknown]
  - Blood glucose increased [Unknown]
